FAERS Safety Report 6796003-2 (Version None)
Quarter: 2010Q2

REPORT INFORMATION
  Report Type: 
  Country: None (occurrence: None)
  Receive Date: 20100625
  Receipt Date: 20100614
  Transmission Date: 20101027
  Serious: Yes (Hospitalization)
  Sender: FDA-Public Use
  Company Number: BR-MEDIMMUNE-MEDI-0011361

PATIENT
  Sex: Female
  Weight: 5.1 kg

DRUGS (1)
  1. SYNAGIS [Suspect]
     Dates: start: 20100319, end: 20100319

REACTIONS (2)
  - INCREASED BRONCHIAL SECRETION [None]
  - INCREASED UPPER AIRWAY SECRETION [None]
